FAERS Safety Report 12343533 (Version 1)
Quarter: 2016Q2

REPORT INFORMATION
  Report Type: Spontaneous
  Country: US (occurrence: US)
  Receive Date: 20160506
  Receipt Date: 20160506
  Transmission Date: 20160815
  Serious: Yes (Hospitalization, Other)
  Sender: FDA-Public Use
  Company Number: US-GLAXOSMITHKLINE-US2016GSK060673

PATIENT
  Sex: Male

DRUGS (3)
  1. LAMICTAL [Suspect]
     Active Substance: LAMOTRIGINE
     Indication: EPILEPSY
  2. LAMOTRIGINE. [Suspect]
     Active Substance: LAMOTRIGINE
     Indication: EPILEPSY
  3. TOPAMAX [Suspect]
     Active Substance: TOPIRAMATE
     Indication: EPILEPSY

REACTIONS (8)
  - Hospitalisation [Unknown]
  - Product substitution issue [Unknown]
  - Drug interaction [Unknown]
  - Hypersensitivity [Unknown]
  - Therapeutic response changed [Unknown]
  - Impaired work ability [Unknown]
  - Seizure [Unknown]
  - Drug ineffective [Unknown]
